FAERS Safety Report 5892594-4 (Version None)
Quarter: 2008Q3

REPORT INFORMATION
  Report Type: 
  Country: None (occurrence: None)
  Receive Date: 20080919
  Receipt Date: 20080919
  Transmission Date: 20090109
  Serious: Yes (Other)
  Sender: FDA-Public Use
  Company Number: None

PATIENT
  Age: 6 Year
  Sex: Male
  Weight: 24.9478 kg

DRUGS (2)
  1. FLOVENT HFA [Suspect]
     Indication: ASTHMA
     Dosage: TWO PUFFS OF 44 MCG TWICE DAILY INHAL
     Route: 055
     Dates: start: 20060901, end: 20080515
  2. FLOVENT HFA [Suspect]
     Indication: HYPERSENSITIVITY
     Dosage: TWO PUFFS OF 44 MCG TWICE DAILY INHAL
     Route: 055
     Dates: start: 20060901, end: 20080515

REACTIONS (7)
  - ABDOMINAL PAIN UPPER [None]
  - DEPRESSION [None]
  - EMOTIONAL DISORDER [None]
  - IRRITABILITY [None]
  - MOOD ALTERED [None]
  - MOOD SWINGS [None]
  - SLEEP DISORDER [None]
